FAERS Safety Report 14373345 (Version 1)
Quarter: 2018Q1

REPORT INFORMATION
  Report Type: Spontaneous
  Country: US (occurrence: AS)
  Receive Date: 20180109
  Receipt Date: 20180109
  Transmission Date: 20180509
  Serious: Yes (Life-Threatening, Hospitalization)
  Sender: FDA-Public Use
  Company Number: None

PATIENT
  Age: 74 Year
  Sex: Male

DRUGS (1)
  1. WARFARIN [Suspect]
     Active Substance: WARFARIN
     Indication: DEEP VEIN THROMBOSIS
     Dosage: 7.5 MG SLIDING SCALE PO
     Route: 048
     Dates: start: 20150101, end: 20170627

REACTIONS (7)
  - Brain midline shift [None]
  - Asthenia [None]
  - Haemorrhage intracranial [None]
  - Confusional state [None]
  - Headache [None]
  - Dizziness [None]
  - Subdural haematoma [None]

NARRATIVE: CASE EVENT DATE: 20170627
